FAERS Safety Report 7066616-1 (Version None)
Quarter: 2010Q4

REPORT INFORMATION
  Report Type: 
  Country: None (occurrence: None)
  Receive Date: 20101027
  Receipt Date: 20100702
  Transmission Date: 20110411
  Serious: No
  Sender: FDA-Public Use
  Company Number: US-WYE-H15690510

PATIENT
  Age: 57 Year
  Sex: Female
  Weight: 80.36 kg

DRUGS (1)
  1. PREMPRO [Suspect]
     Indication: HORMONE REPLACEMENT THERAPY
     Route: 048
     Dates: start: 20080101

REACTIONS (2)
  - DRUG INEFFECTIVE [None]
  - PRODUCT SIZE ISSUE [None]
